FAERS Safety Report 6472799-4 (Version None)
Quarter: 2009Q4

REPORT INFORMATION
  Report Type: 
  Country: None (occurrence: None)
  Receive Date: 20091201
  Receipt Date: 20091117
  Transmission Date: 20100525
  Serious: Yes (Hospitalization)
  Sender: FDA-Public Use
  Company Number: 2009AP004618

PATIENT
  Age: 58 Year
  Sex: Male

DRUGS (14)
  1. TERBINAFINE HCL [Suspect]
     Indication: ONYCHOMYCOSIS
     Dosage: 250 MG; PO
     Route: 048
     Dates: start: 20090906
  2. BISOPROLOL FUMARATE [Concomitant]
  3. LANSOPRAZOLE [Concomitant]
  4. MORPHINE SULFATE INJ [Concomitant]
  5. PREGABALIN [Concomitant]
  6. QUININE SULFATE (QUININE SULFATE) [Concomitant]
  7. SIMVASTATIN [Concomitant]
  8. TENOXICAM (TENOXICAM) [Concomitant]
  9. TRAMADOL HCL [Concomitant]
  10. CODEINE SUL TAB [Concomitant]
  11. PENICILLIN NOS (PENICILLIN NOS) [Concomitant]
  12. MEPERIDINE HCL [Concomitant]
  13. CIPROFLOXACIN [Concomitant]
  14. METRONIDAZOLE [Concomitant]

REACTIONS (1)
  - PANCREATITIS [None]
